FAERS Safety Report 10435134 (Version 1)
Quarter: 2014Q3

REPORT INFORMATION
  Report Type: Spontaneous
  Country: US (occurrence: None)
  Receive Date: 20140825
  Receipt Date: 20140825
  Transmission Date: 20150326
  Serious: Yes (Death, Hospitalization)
  Sender: FDA-Public Use
  Company Number: None

PATIENT
  Age: 77 Year
  Sex: Male
  Weight: 100.5 kg

DRUGS (2)
  1. TAXOL [Suspect]
     Active Substance: PACLITAXEL
     Dates: start: 20140402
  2. CARBOPLATIN. [Suspect]
     Active Substance: CARBOPLATIN
     Dates: start: 20140402

REACTIONS (14)
  - Respiratory failure [None]
  - Sepsis [None]
  - Malnutrition [None]
  - Metabolic acidosis [None]
  - Dialysis [None]
  - Neutropenia [None]
  - Oesophagoenterostomy [None]
  - Cardiovascular disorder [None]
  - Jaundice [None]
  - Ascites [None]
  - Multi-organ failure [None]
  - Atrial fibrillation [None]
  - Septic shock [None]
  - Biliary dilatation [None]

NARRATIVE: CASE EVENT DATE: 20140804
